FAERS Safety Report 17649373 (Version 1)
Quarter: 2020Q2

REPORT INFORMATION
  Report Type: Spontaneous
  Country: US (occurrence: US)
  Receive Date: 20200408
  Receipt Date: 20200408
  Transmission Date: 20200713
  Serious: No
  Sender: FDA-Public Use
  Company Number: None

PATIENT
  Sex: Female

DRUGS (2)
  1. VERZENIO [Suspect]
     Active Substance: ABEMACICLIB
     Dosage: ?          OTHER FREQUENCY:QPM;?
     Route: 048
     Dates: start: 20191114
  2. VERZENIO [Suspect]
     Active Substance: ABEMACICLIB
     Dosage: ?          OTHER FREQUENCY:QAM;?
     Route: 048
     Dates: start: 20191114

REACTIONS (1)
  - Inappropriate schedule of product administration [None]
